FAERS Safety Report 8184611-6 (Version None)
Quarter: 2012Q1

REPORT INFORMATION
  Report Type: 
  Country: None (occurrence: None)
  Receive Date: 20120305
  Receipt Date: 20120223
  Transmission Date: 20120608
  Serious: Yes (Other)
  Sender: FDA-Public Use
  Company Number: GB-PFIZER INC-2012055333

PATIENT
  Age: 86 Year
  Sex: Female
  Weight: 95 kg

DRUGS (9)
  1. LANSOPRAZOLE [Concomitant]
     Dosage: UNK
     Dates: start: 20111017
  2. MACROGOL [Concomitant]
     Dosage: UNK
     Dates: start: 20110113, end: 20120210
  3. CO-AMILOFRUSE [Concomitant]
     Dosage: UNK
     Dates: start: 20111114
  4. MORPHINE SULFATE [Suspect]
     Indication: BACK PAIN
     Dosage: UNK
     Dates: start: 20120213
  5. ATENOLOL [Concomitant]
     Dosage: UNK
     Dates: start: 20111114
  6. ACETAMINOPHEN AND CODEINE PHOSPHATE [Concomitant]
     Dosage: UNK
     Dates: start: 20111017
  7. DOMPERIDONE [Concomitant]
     Dosage: UNK
     Dates: start: 20120113
  8. FUROSEMIDE [Concomitant]
     Dosage: UNK
     Dates: start: 20111114
  9. WARFARIN SODIUM [Concomitant]

REACTIONS (3)
  - NAUSEA [None]
  - SWOLLEN TONGUE [None]
  - TYPE IV HYPERSENSITIVITY REACTION [None]
